FAERS Safety Report 16573770 (Version 1)
Quarter: 2019Q3

REPORT INFORMATION
  Report Type: Spontaneous
  Country: ES (occurrence: ES)
  Receive Date: 20190715
  Receipt Date: 20190715
  Transmission Date: 20191004
  Serious: Yes (Other)
  Sender: FDA-Public Use
  Company Number: ES-MYLANLABS-2019M1065610

PATIENT
  Age: 58 Year
  Sex: Male

DRUGS (5)
  1. PANTECTA [Concomitant]
     Active Substance: PANTOPRAZOLE SODIUM
     Dosage: UNK
  2. PRODERMA [Concomitant]
     Indication: ROSACEA
     Dosage: 100 MILLIGRAM, QD
  3. PARACETAMOL [Concomitant]
     Active Substance: ACETAMINOPHEN
     Dosage: UNK
  4. TENOFOVIR [Suspect]
     Active Substance: TENOFOVIR
     Indication: HEPATITIS B
     Dosage: UNK
     Route: 065
     Dates: start: 201006
  5. PRODERMA [Concomitant]
     Indication: RHINOPHYMA

REACTIONS (3)
  - Renal impairment [Not Recovered/Not Resolved]
  - Hypophosphataemia [Not Recovered/Not Resolved]
  - Tongue neoplasm malignant stage unspecified [Unknown]
